FAERS Safety Report 18037318 (Version 1)
Quarter: 2020Q3

REPORT INFORMATION
  Report Type: Report from Study
  Country: CO (occurrence: CO)
  Receive Date: 20200717
  Receipt Date: 20200717
  Transmission Date: 20201103
  Serious: Yes (Hospitalization, Other)
  Sender: FDA-Public Use
  Company Number: CO-ASTELLAS-2020US019763

PATIENT
  Age: 33 Year
  Sex: Male
  Weight: 60 kg

DRUGS (7)
  1. MYCOPHENOLATE [Concomitant]
     Active Substance: MYCOPHENOLIC ACID
     Indication: IMMUNOSUPPRESSION
     Dosage: 2 DF, TWICE DAILY (2 CAPSULES OF 360MG IN MORNING AND 2 CAPSULES OF 360MG AT NIGHT)
     Route: 048
     Dates: start: 20191201
  2. PREDNISOLONE. [Concomitant]
     Active Substance: PREDNISOLONE
     Indication: IMMUNOSUPPRESSION
     Route: 048
     Dates: start: 20191201
  3. MYCOPHENOLATE [Concomitant]
     Active Substance: MYCOPHENOLIC ACID
     Dosage: 1 DF, TWICE DAILY (1 CAPSULES OF 360MG IN MORNING AND 1 CAPSULES OF 360MG AT NIGHT)
     Route: 048
     Dates: start: 20200618
  4. LOSARTAN. [Concomitant]
     Active Substance: LOSARTAN
     Indication: PRODUCT USED FOR UNKNOWN INDICATION
     Dosage: 50 MG, ONCE DAILY 2 MONTHS AGO
     Route: 048
     Dates: start: 202004
  5. TACROLIMUS. [Suspect]
     Active Substance: TACROLIMUS
     Route: 048
     Dates: start: 202006
  6. TACROLIMUS. [Suspect]
     Active Substance: TACROLIMUS
     Indication: RENAL TRANSPLANT
     Dosage: 7 MG, ONCE DAILY (1 CAPSULE OF 5 MG AND 2 OF 1 MG)
     Route: 048
     Dates: start: 20191202, end: 20200107
  7. TACROLIMUS. [Suspect]
     Active Substance: TACROLIMUS
     Dosage: 5 MG, ONCE DAILY (1 CAPSULE OF 5 MG)
     Route: 048
     Dates: start: 20200108, end: 202006

REACTIONS (18)
  - Hydronephrosis [Recovering/Resolving]
  - Renal graft infection [Recovering/Resolving]
  - Gait inability [Unknown]
  - Nausea [Unknown]
  - Polyomavirus test positive [Unknown]
  - Renal cyst [Unknown]
  - Renal pain [Unknown]
  - Complications of transplanted kidney [Recovering/Resolving]
  - Discomfort [Unknown]
  - Wound complication [Unknown]
  - Asthenia [Unknown]
  - Blood creatinine increased [Unknown]
  - Viral infection [Recovering/Resolving]
  - Vomiting [Unknown]
  - Feeding disorder [Unknown]
  - Blood urine present [Unknown]
  - Urinary tract infection viral [Unknown]
  - Irritable bowel syndrome [Recovered/Resolved]

NARRATIVE: CASE EVENT DATE: 20191202
